FAERS Safety Report 7235464-1 (Version None)
Quarter: 2011Q1

REPORT INFORMATION
  Report Type: 
  Country: None (occurrence: None)
  Receive Date: 20110110
  Receipt Date: 20101228
  Transmission Date: 20110831
  Serious: Yes (Other)
  Sender: FDA-Public Use
  Company Number: B0692370A

PATIENT
  Age: 33 Year
  Sex: Female

DRUGS (2)
  1. OXCARBAZEPINE [Suspect]
     Indication: PARTIAL SEIZURES
  2. LAMOTRIGINE [Suspect]
     Indication: PARTIAL SEIZURES

REACTIONS (6)
  - CONDITION AGGRAVATED [None]
  - PREGNANCY [None]
  - ANTICONVULSANT DRUG LEVEL DECREASED [None]
  - DRUG CLEARANCE INCREASED [None]
  - COMPLEX PARTIAL SEIZURES [None]
  - DRUG EXPOSURE DURING PREGNANCY [None]
